FAERS Safety Report 6171935-7 (Version None)
Quarter: 2009Q2

REPORT INFORMATION
  Report Type: 
  Country: None (occurrence: None)
  Receive Date: 20090429
  Receipt Date: 20090420
  Transmission Date: 20091009
  Serious: Yes (Other)
  Sender: FDA-Public Use
  Company Number: ES-ELI_LILLY_AND_COMPANY-ES200904004457

PATIENT
  Age: 14 Year
  Sex: Male

DRUGS (1)
  1. HUMATROPE [Suspect]
     Indication: GROWTH HORMONE DEFICIENCY
     Dosage: 1.4 MG, DAILY (1/D)
     Route: 058
     Dates: start: 20061001, end: 20080501

REACTIONS (2)
  - RETINOPATHY PROLIFERATIVE [None]
  - VITREOUS HAEMORRHAGE [None]
